FAERS Safety Report 18188834 (Version 1)
Quarter: 2020Q3

REPORT INFORMATION
  Report Type: Spontaneous
  Country: JP (occurrence: JP)
  Receive Date: 20200824
  Receipt Date: 20200824
  Transmission Date: 20201103
  Serious: Yes (Hospitalization)
  Sender: FDA-Public Use
  Company Number: JP-PFIZER INC-2020321532

PATIENT
  Age: 71 Year
  Sex: Female

DRUGS (1)
  1. ZITHROMAC SR 2G [Suspect]
     Active Substance: AZITHROMYCIN MONOHYDRATE
     Indication: PNEUMONIA
     Dosage: 2 G, DAILY
     Route: 048
     Dates: start: 20200720

REACTIONS (5)
  - Pyrexia [Unknown]
  - Hepatic function abnormal [Unknown]
  - Hyperlactacidaemia [Unknown]
  - Anaemia [Unknown]
  - Interstitial lung disease [Recovering/Resolving]

NARRATIVE: CASE EVENT DATE: 20200812
